FAERS Safety Report 23595647 (Version 3)
Quarter: 2024Q2

REPORT INFORMATION
  Report Type: Spontaneous
  Country: CA (occurrence: None)
  Receive Date: 20240305
  Receipt Date: 20240501
  Transmission Date: 20240716
  Serious: Yes (Other)
  Sender: FDA-Public Use
  Company Number: CA-PFIZER INC-202400054700

PATIENT
  Age: 83 Year
  Sex: Male
  Weight: 75 kg

DRUGS (21)
  1. METHOTREXATE [Suspect]
     Active Substance: METHOTREXATE
     Indication: Product used for unknown indication
  2. INFLECTRA [Suspect]
     Active Substance: INFLIXIMAB-DYYB
     Indication: Rheumatoid arthritis
     Dates: start: 20220420, end: 20230120
  3. INFLECTRA [Suspect]
     Active Substance: INFLIXIMAB-DYYB
     Dates: start: 20230517
  4. INFLECTRA [Suspect]
     Active Substance: INFLIXIMAB-DYYB
     Dates: start: 20240104
  5. INFLECTRA [Suspect]
     Active Substance: INFLIXIMAB-DYYB
     Dosage: 300 MG EVERY 12 WEEKS (300 MG, AFTER 7 WEEKS AND 6 DAYS)
     Dates: start: 20240228
  6. INFLECTRA [Suspect]
     Active Substance: INFLIXIMAB-DYYB
     Dates: start: 20240422
  7. ACETAMINOPHEN [Concomitant]
     Active Substance: ACETAMINOPHEN
  8. FOLIC ACID [Concomitant]
     Active Substance: FOLIC ACID
  9. DULOXETINE [Concomitant]
     Active Substance: DULOXETINE
  10. CHOLECALCIFEROL [Concomitant]
     Active Substance: CHOLECALCIFEROL
  11. CARBIDOPA\LEVODOPA [Concomitant]
     Active Substance: CARBIDOPA\LEVODOPA
  12. PANTOPRAZOLE [Concomitant]
     Active Substance: PANTOPRAZOLE
  13. PREDNISONE [Concomitant]
     Active Substance: PREDNISONE
  14. RELAXA [MACROGOL 3350] [Concomitant]
  15. RESTASIS [Concomitant]
     Active Substance: CYCLOSPORINE
  16. SIMVASTATIN [Concomitant]
     Active Substance: SIMVASTATIN
  17. SYSTANE (HYPROMELLOSE 2910 (4000 MPA.S)) [Concomitant]
     Active Substance: HYPROMELLOSE 2910 (4000 MPA.S)
  18. TIAZAC [Concomitant]
     Active Substance: DILTIAZEM HYDROCHLORIDE
  19. VITAMIN B12 [Concomitant]
     Active Substance: CYANOCOBALAMIN
  20. VALACYCLOVIR [Concomitant]
     Active Substance: VALACYCLOVIR HYDROCHLORIDE
  21. ZOPICLONE [Concomitant]
     Active Substance: ZOPICLONE

REACTIONS (7)
  - Parkinson^s disease [Not Recovered/Not Resolved]
  - Chills [Recovered/Resolved]
  - Abdominal pain upper [Recovered/Resolved]
  - Arthritis [Recovered/Resolved]
  - Osteoarthritis [Recovered/Resolved]
  - Abdominal pain [Recovered/Resolved]
  - Food poisoning [Recovered/Resolved]

NARRATIVE: CASE EVENT DATE: 20230101
